FAERS Safety Report 5090797-2 (Version None)
Quarter: 2006Q3

REPORT INFORMATION
  Report Type: 
  Country: None (occurrence: None)
  Receive Date: 20060823
  Receipt Date: 20060412
  Transmission Date: 20061208
  Serious: Yes (Other)
  Sender: FDA-Public Use
  Company Number: 8018468

PATIENT
  Age: 21 Month
  Sex: Female

DRUGS (2)
  1. THEOPHYLLINE [Suspect]
     Indication: ASTHMA
  2. KETOTIFEN FUMARATE [Suspect]

REACTIONS (5)
  - APHASIA [None]
  - CEREBRAL ATROPHY [None]
  - EPILEPSY [None]
  - HEMIPLEGIA [None]
  - ILL-DEFINED DISORDER [None]
